FAERS Safety Report 14946334 (Version 2)
Quarter: 2018Q3

REPORT INFORMATION
  Report Type: Report from Study
  Country: CA (occurrence: CA)
  Receive Date: 20180529
  Receipt Date: 20180903
  Transmission Date: 20181010
  Serious: Yes (Other)
  Sender: FDA-Public Use
  Company Number: PHHY2014CA087662

PATIENT
  Age: 69 Year
  Sex: Female

DRUGS (10)
  1. SANDOSTATIN [Suspect]
     Active Substance: OCTREOTIDE ACETATE
     Indication: ACROMEGALY
     Dosage: UNK UNK, TID (FOR 1 WEEK)
     Route: 058
     Dates: start: 20140706, end: 201407
  2. SANDOSTATIN LAR DEPOT [Suspect]
     Active Substance: OCTREOTIDE ACETATE
     Dosage: 10 MG, QMO (EVERY 4 WEEKS)
     Route: 030
     Dates: start: 20140908, end: 20150223
  3. PANTOLOK [Concomitant]
     Indication: PRODUCT USED FOR UNKNOWN INDICATION
     Route: 065
  4. SANDOSTATIN LAR DEPOT [Suspect]
     Active Substance: OCTREOTIDE ACETATE
     Dosage: 10 MG, TIW (EVERY THREE WEEKS)
     Route: 030
     Dates: start: 20150323, end: 20150817
  5. SANDOSTATIN LAR DEPOT [Suspect]
     Active Substance: OCTREOTIDE ACETATE
     Dosage: 10 MG, BIW (EVERY TWO WEEKS)
     Route: 030
     Dates: start: 20150907, end: 20160802
  6. SANDOSTATIN LAR DEPOT [Suspect]
     Active Substance: OCTREOTIDE ACETATE
     Dosage: 20 MG, TIW (EVERY 3 WEEKS)
     Route: 030
     Dates: start: 20160815
  7. DOSTINEX [Concomitant]
     Active Substance: CABERGOLINE
     Indication: PRODUCT USED FOR UNKNOWN INDICATION
     Dosage: UNK UNK, TIW (THREE TIMES A WEEK)
     Route: 065
  8. CABERGOLINE. [Concomitant]
     Active Substance: CABERGOLINE
     Indication: PRODUCT USED FOR UNKNOWN INDICATION
     Dosage: UNK
     Route: 048
     Dates: start: 1988
  9. SANDOSTATIN LAR DEPOT [Suspect]
     Active Substance: OCTREOTIDE ACETATE
     Indication: ACROMEGALY
     Dosage: 20 MG, QMO (EVERY 4 WEEKS)
     Route: 030
     Dates: start: 20140714, end: 20140811
  10. VOLTAREN [Suspect]
     Active Substance: DICLOFENAC SODIUM
     Indication: LIGAMENT SPRAIN
     Dosage: UNK
     Route: 065
     Dates: start: 20170725

REACTIONS (34)
  - Body temperature decreased [Unknown]
  - Social fear [Unknown]
  - Gastrointestinal disorder [Unknown]
  - Hypoaesthesia [Not Recovered/Not Resolved]
  - Anxiety [Unknown]
  - Malignant melanoma [Unknown]
  - Blood pressure decreased [Unknown]
  - Sinus congestion [Unknown]
  - Flatulence [Unknown]
  - Nausea [Recovered/Resolved]
  - Pituitary enlargement [Unknown]
  - Insulin-like growth factor decreased [Recovering/Resolving]
  - Abdominal distension [Unknown]
  - Dizziness [Unknown]
  - Headache [Unknown]
  - Hepatic pain [Unknown]
  - Blood pressure systolic increased [Unknown]
  - Blood test abnormal [Unknown]
  - Carpal tunnel syndrome [Unknown]
  - Constipation [Recovering/Resolving]
  - Diarrhoea [Unknown]
  - Inappropriate schedule of drug administration [Unknown]
  - Hepatic mass [Unknown]
  - Blood pressure increased [Unknown]
  - Abdominal pain [Unknown]
  - Drug ineffective [Unknown]
  - Cholelithiasis [Unknown]
  - Discomfort [Unknown]
  - Sinusitis [Recovering/Resolving]
  - Nasopharyngitis [Recovered/Resolved]
  - Rhinorrhoea [Recovered/Resolved]
  - Polyp [Unknown]
  - Nasal congestion [Unknown]
  - Blood growth hormone increased [Unknown]

NARRATIVE: CASE EVENT DATE: 2014
